FAERS Safety Report 5901510-8 (Version None)
Quarter: 2008Q3

REPORT INFORMATION
  Report Type: 
  Country: None (occurrence: None)
  Receive Date: 20080926
  Receipt Date: 20080926
  Transmission Date: 20090109
  Serious: Yes (Other)
  Sender: FDA-Public Use
  Company Number: None

PATIENT
  Age: 16 Year
  Sex: Female

DRUGS (1)
  1. SOLODYN [Suspect]
     Indication: ACNE
     Dosage: 1 TABLET ONCE DAILY PO
     Route: 048
     Dates: start: 20080703, end: 20080917

REACTIONS (4)
  - CSF TEST ABNORMAL [None]
  - DIPLOPIA [None]
  - HEADACHE [None]
  - PAPILLOEDEMA [None]
